FAERS Safety Report 8286427-9 (Version None)
Quarter: 2012Q2

REPORT INFORMATION
  Report Type: 
  Country: None (occurrence: None)
  Receive Date: 20120411
  Receipt Date: 20120411
  Transmission Date: 20120825
  Serious: No
  Sender: FDA-Public Use
  Company Number: None

PATIENT
  Sex: Male
  Weight: 70.3075 kg

DRUGS (1)
  1. MORPHINE [Suspect]
     Indication: BACK PAIN
     Dosage: 15ML12 HRS X 2 PER DAY
     Dates: start: 20090901, end: 20120301

REACTIONS (9)
  - GASTRIC DISORDER [None]
  - AGEUSIA [None]
  - ANOSMIA [None]
  - PAIN [None]
  - RHINORRHOEA [None]
  - CONSTIPATION [None]
  - DRY MOUTH [None]
  - BALANCE DISORDER [None]
  - MEMORY IMPAIRMENT [None]
